FAERS Safety Report 16595214 (Version 1)
Quarter: 2019Q3

REPORT INFORMATION
  Report Type: Spontaneous
  Country: ES (occurrence: ES)
  Receive Date: 20190718
  Receipt Date: 20190718
  Transmission Date: 20191004
  Serious: Yes (Hospitalization, Other)
  Sender: FDA-Public Use
  Company Number: ES-AUROBINDO-AUR-APL-2019-039940

PATIENT

DRUGS (6)
  1. METAMIZOL [Suspect]
     Active Substance: METAMIZOLE SODIUM
     Indication: PYREXIA
     Dosage: 2 GRAM, FOUR TIMES/DAY
     Route: 042
     Dates: start: 20190308
  2. DAPTOMYCINE [Suspect]
     Active Substance: DAPTOMYCIN
     Indication: ENDOCARDITIS
     Dosage: 1250 MILLIGRAM, ONCE A DAY
     Route: 042
     Dates: start: 20190306
  3. GENTAMICIN. [Suspect]
     Active Substance: GENTAMICIN
     Indication: ENDOCARDITIS
     Dosage: 360 MILLIGRAM, ONCE A DAY
     Route: 042
     Dates: start: 20190306, end: 20190328
  4. CHLOROPHYLLIN [Suspect]
     Active Substance: SODIUM COPPER CHLOROPHYLLIN
     Indication: ENDOCARDITIS
     Dosage: 2 GRAM, EVERY FOUR HOUR
     Route: 042
     Dates: start: 20190306
  5. PARACETAMOL [Suspect]
     Active Substance: ACETAMINOPHEN
     Indication: PYREXIA
     Dosage: 1 GRAM, 3 TIMES A DAY
     Route: 042
     Dates: start: 20190306
  6. OMEPRAZOLE. [Suspect]
     Active Substance: OMEPRAZOLE
     Indication: GASTRITIS PROPHYLAXIS
     Dosage: 40 MILLIGRAM, ONCE A DAY
     Route: 042
     Dates: start: 20190306, end: 20190403

REACTIONS (1)
  - Drug reaction with eosinophilia and systemic symptoms [Recovered/Resolved]

NARRATIVE: CASE EVENT DATE: 20190312
